FAERS Safety Report 9178452 (Version 1)
Quarter: 2012Q4

REPORT INFORMATION
  Report Type: 
  Country: US (occurrence: US)
  Receive Date: 20121029
  Receipt Date: 20121029
  Transmission Date: 20130627
  Serious: No
  Sender: FDA-Public Use
  Company Number: US-AMGEN-USASP2012053111

PATIENT
  Sex: Female
  Weight: 55.78 kg

DRUGS (13)
  1. ENBREL [Suspect]
     Indication: PRODUCT USED FOR UNKNOWN INDICATION
     Dosage: 50 mg, qwk
     Route: 058
  2. CYMBALTA [Concomitant]
     Dosage: 60 mg, UNK
  3. CENTRUM                            /02217401/ [Concomitant]
     Dosage: UNK
  4. AMLODIPINE                         /00972402/ [Concomitant]
     Dosage: 10 mg, UNK
  5. PRILOSEC                           /00661201/ [Concomitant]
     Dosage: 20 mg, UNK
  6. TRAZODONE                          /00447702/ [Concomitant]
     Dosage: 300 mg, UNK
  7. MIRAPEX [Concomitant]
     Dosage: 2.25 mg, UNK
  8. METHOTREXATE                       /00113802/ [Concomitant]
     Dosage: 250 mg/10
  9. GABAPENTIN [Concomitant]
     Dosage: 250/5 ml
  10. FOLIC ACID [Concomitant]
     Dosage: 5 mg/ml
  11. RESTASIS [Concomitant]
     Dosage: 0.05 %, UNK
  12. FLONASE [Concomitant]
     Dosage: 0.05 %, UNK
  13. CALCITRATE [Concomitant]

REACTIONS (2)
  - Injection site bruising [Unknown]
  - Injection site pain [Unknown]
